FAERS Safety Report 5886896-5 (Version None)
Quarter: 2008Q3

REPORT INFORMATION
  Report Type: 
  Country: None (occurrence: None)
  Receive Date: 20080917
  Receipt Date: 20080912
  Transmission Date: 20090109
  Serious: Yes (Hospitalization, Other)
  Sender: FDA-Public Use
  Company Number: US-ABBOTT-08P-163-0476075-00

PATIENT
  Sex: Female
  Weight: 47.216 kg

DRUGS (5)
  1. HUMIRA [Suspect]
     Indication: CROHN'S DISEASE
     Route: 058
     Dates: end: 20080701
  2. HUMIRA [Suspect]
     Route: 058
     Dates: start: 20070901, end: 20070901
  3. HUMIRA [Suspect]
     Route: 058
  4. HUMIRA [Suspect]
     Route: 058
     Dates: start: 20080801
  5. VIGRAN [Concomitant]
     Indication: VITAMIN SUPPLEMENTATION
     Route: 048
     Dates: start: 20080701

REACTIONS (3)
  - BLOOD COUNT ABNORMAL [None]
  - DIARRHOEA [None]
  - PYREXIA [None]
